FAERS Safety Report 5063788-5 (Version None)
Quarter: 2006Q3

REPORT INFORMATION
  Report Type: 
  Country: None (occurrence: None)
  Receive Date: 20060703
  Receipt Date: 20060418
  Transmission Date: 20061208
  Serious: No
  Sender: FDA-Public Use
  Company Number: 2006S1003743

PATIENT
  Age: 81 Year
  Sex: Female

DRUGS (22)
  1. CLOZAPINE [Suspect]
     Indication: BIPOLAR DISORDER
     Dosage: 100 MG; QD; PO;  100 MG; QD; PO
     Route: 048
     Dates: start: 20051230, end: 20060408
  2. CLOZAPINE [Suspect]
     Indication: BIPOLAR DISORDER
     Dosage: 100 MG; QD; PO;  100 MG; QD; PO
     Route: 048
     Dates: start: 20060415
  3. LORAZEPAM [Concomitant]
  4. OXCARBAZEPINE [Concomitant]
  5. LISINOPRIL [Concomitant]
  6. OXYCODONE HCL [Concomitant]
  7. MAGNESIUM OXIDE [Concomitant]
  8. DOCUSATE [Concomitant]
  9. METFORMIN [Concomitant]
  10. PANTOPRAZOLE SODIUM [Concomitant]
  11. CALCIUM GLUCONATE [Concomitant]
  12. LOVASTATIN [Concomitant]
  13. LIDOCAINE [Concomitant]
  14. ESCITALOPRAM [Concomitant]
  15. TILACTASE [Concomitant]
  16. ISOSORBIDE DINITRATE [Concomitant]
  17. ALENDRONATE SODIUM [Concomitant]
  18. VITAMIN NOS [Concomitant]
  19. ATENOLOL [Concomitant]
  20. ASPIRIN [Concomitant]
  21. DONEPEZIL HYDROCHLORIDE [Concomitant]
  22. PARACETAMOL [Concomitant]

REACTIONS (1)
  - GRANULOCYTOPENIA [None]
